FAERS Safety Report 14701259 (Version 1)
Quarter: 2018Q1

REPORT INFORMATION
  Report Type: Spontaneous
  Country: US (occurrence: US)
  Receive Date: 20180328
  Receipt Date: 20180328
  Transmission Date: 20180509
  Serious: No
  Sender: FDA-Public Use
  Company Number: None

PATIENT
  Age: 41 Year
  Sex: Male
  Weight: 96.8 kg

DRUGS (1)
  1. GLATIRAMER 40MG [Suspect]
     Active Substance: GLATIRAMER
     Indication: MULTIPLE SCLEROSIS
     Route: 058
     Dates: start: 20180326

REACTIONS (6)
  - Nausea [None]
  - Flushing [None]
  - Rash generalised [None]
  - Dyspnoea [None]
  - Salivary hypersecretion [None]
  - Arthralgia [None]

NARRATIVE: CASE EVENT DATE: 20180326
